FAERS Safety Report 5415116-0 (Version None)
Quarter: 2007Q3

REPORT INFORMATION
  Report Type: 
  Country: None (occurrence: None)
  Receive Date: 20070815
  Receipt Date: 20070612
  Transmission Date: 20080115
  Serious: No
  Sender: FDA-Public Use
  Company Number: A0656488A

PATIENT
  Sex: Male

DRUGS (6)
  1. COREG CR [Suspect]
     Dosage: 40MG PER DAY
     Route: 048
     Dates: start: 20070401
  2. COREG [Suspect]
     Dosage: 20MG TWICE PER DAY
     Route: 048
     Dates: start: 20050101, end: 20070101
  3. DIGOXIN [Concomitant]
  4. LISINOPRIL [Concomitant]
  5. PROTONIX [Concomitant]
  6. ASPIRIN [Concomitant]

REACTIONS (3)
  - DYSPHAGIA [None]
  - PHARYNGOLARYNGEAL PAIN [None]
  - RHINORRHOEA [None]
